FAERS Safety Report 10674565 (Version 1)
Quarter: 2014Q4

REPORT INFORMATION
  Report Type: Spontaneous
  Country: US (occurrence: US)
  Receive Date: 20141224
  Receipt Date: 20141224
  Transmission Date: 20150529
  Serious: Yes (Other)
  Sender: FDA-Public Use
  Company Number: US-ASTRAZENECA-2014SE97293

PATIENT
  Sex: Female
  Weight: 60.3 kg

DRUGS (3)
  1. NEXIUM [Suspect]
     Active Substance: ESOMEPRAZOLE MAGNESIUM
     Indication: GASTROOESOPHAGEAL REFLUX DISEASE
     Route: 048
  2. NEXIUM [Suspect]
     Active Substance: ESOMEPRAZOLE MAGNESIUM
     Indication: GASTROOESOPHAGEAL REFLUX DISEASE
     Dosage: OCCASIONALLY HAD TO TAKE IT TWICE A DAY
     Route: 048
  3. AMBIEN [Concomitant]
     Active Substance: ZOLPIDEM TARTRATE
     Indication: MENOPAUSE

REACTIONS (5)
  - Oesophageal pain [Unknown]
  - Drug dose omission [Unknown]
  - Gastric polyps [Unknown]
  - Intentional product misuse [Not Recovered/Not Resolved]
  - Dysphagia [Not Recovered/Not Resolved]
